FAERS Safety Report 21749082 (Version 5)
Quarter: 2023Q1

REPORT INFORMATION
  Report Type: Report from Study
  Country: CA (occurrence: CA)
  Receive Date: 20221219
  Receipt Date: 20230111
  Transmission Date: 20230418
  Serious: Yes (Life-Threatening, Hospitalization, Other)
  Sender: FDA-Public Use
  Company Number: CA-KOREA IPSEN Pharma-2022-33714

PATIENT
  Age: 63 Year
  Sex: Male

DRUGS (1)
  1. LANREOTIDE ACETATE [Suspect]
     Active Substance: LANREOTIDE ACETATE
     Indication: Neuroendocrine tumour
     Dosage: 120MG Q4WEEKS
     Route: 058
     Dates: start: 20200527

REACTIONS (8)
  - Hospitalisation [Unknown]
  - Abdominal pain [Unknown]
  - Constipation [Unknown]
  - Neoplasm progression [Unknown]
  - Gastrointestinal obstruction [Unknown]
  - Adverse event [Unknown]
  - Near death experience [Unknown]
  - Disease progression [Unknown]

NARRATIVE: CASE EVENT DATE: 20221201
